FAERS Safety Report 7815045-9 (Version None)
Quarter: 2011Q4

REPORT INFORMATION
  Report Type: 
  Country: None (occurrence: None)
  Receive Date: 20111014
  Receipt Date: 20111004
  Transmission Date: 20120403
  Serious: Yes (Hospitalization, Other)
  Sender: FDA-Public Use
  Company Number: CA-JNJFOC-20111005015

PATIENT
  Sex: Female
  Weight: 51 kg

DRUGS (7)
  1. REMICADE [Suspect]
     Indication: CROHN'S DISEASE
     Route: 042
  2. VITAMIN B-12 [Concomitant]
     Route: 050
  3. ENTOCORT EC [Concomitant]
  4. ATIVAN [Concomitant]
  5. REMICADE [Suspect]
     Dosage: TOTAL OF 60 INFUSIONS
     Route: 042
     Dates: start: 20111004
  6. LOMOTIL [Concomitant]
  7. GRAVOL TAB [Concomitant]
     Indication: PREMEDICATION
     Route: 042
     Dates: start: 20111004

REACTIONS (3)
  - NAUSEA [None]
  - NEPHROLITHIASIS [None]
  - INFUSION RELATED REACTION [None]
